FAERS Safety Report 10345051 (Version 3)
Quarter: 2014Q3

REPORT INFORMATION
  Report Type: Spontaneous
  Country: US (occurrence: None)
  Receive Date: 20140724
  Receipt Date: 20140903
  Transmission Date: 20150326
  Serious: Yes (Hospitalization)
  Sender: FDA-Public Use
  Company Number: QSC-2014-0421

PATIENT
  Age: 72 Year
  Sex: Female

DRUGS (10)
  1. H.P. ACTHAR [Suspect]
     Active Substance: CORTICOTROPIN
     Indication: PROTEINURIA
     Route: 058
     Dates: start: 20131113, end: 20140627
  2. DIOVAN [Concomitant]
     Active Substance: VALSARTAN
  3. WARFARIN [Concomitant]
     Active Substance: WARFARIN
  4. FOLIC ACID. [Concomitant]
     Active Substance: FOLIC ACID
  5. COLCHICINE. [Concomitant]
     Active Substance: COLCHICINE
  6. METRONIDAZOLE. [Concomitant]
     Active Substance: METRONIDAZOLE
  7. TORASEMIDE [Concomitant]
     Active Substance: TORSEMIDE
  8. LEVAQUIN [Concomitant]
     Active Substance: LEVOFLOXACIN
  9. OMEPRAZOLE. [Concomitant]
     Active Substance: OMEPRAZOLE
  10. FUROSEMIDE. [Concomitant]
     Active Substance: FUROSEMIDE

REACTIONS (15)
  - Hypertension [None]
  - Cerebral infarction [None]
  - Aortic valve incompetence [None]
  - Aortic valve sclerosis [None]
  - Mitral valve incompetence [None]
  - Fall [None]
  - Tricuspid valve incompetence [None]
  - Joint injury [None]
  - Aortic valve stenosis [None]
  - Endometriosis [None]
  - Abdominal pain lower [None]
  - Transient ischaemic attack [None]
  - Drug ineffective [None]
  - Mitral valve calcification [None]
  - International normalised ratio increased [None]

NARRATIVE: CASE EVENT DATE: 201406
